FAERS Safety Report 19125232 (Version 1)
Quarter: 2021Q2

REPORT INFORMATION
  Report Type: Spontaneous
  Country: BR (occurrence: BR)
  Receive Date: 20210413
  Receipt Date: 20210413
  Transmission Date: 20210717
  Serious: Yes (Hospitalization)
  Sender: FDA-Public Use
  Company Number: BR-BIOGEN-2021BI01000437

PATIENT
  Age: 20 Month
  Sex: Female

DRUGS (1)
  1. SPINRAZA [Suspect]
     Active Substance: NUSINERSEN
     Indication: SPINAL MUSCULAR ATROPHY
     Route: 037

REACTIONS (5)
  - Laryngeal disorder [Unknown]
  - Abdominal distension [Unknown]
  - Dysphagia [Not Recovered/Not Resolved]
  - Therapeutic product effect decreased [Unknown]
  - Weight decreased [Unknown]
